FAERS Safety Report 21838932 (Version 1)
Quarter: 2023Q1

REPORT INFORMATION
  Report Type: Spontaneous
  Country: US (occurrence: None)
  Receive Date: 20230108
  Receipt Date: 20230108
  Transmission Date: 20230417
  Serious: Yes (Hospitalization)
  Sender: FDA-Public Use
  Company Number: None

PATIENT
  Age: 65 Year
  Sex: Male
  Weight: 100.70 kg

DRUGS (1)
  1. APIXABAN [Suspect]
     Active Substance: APIXABAN
     Indication: Atrial fibrillation
     Dosage: FREQUENCY : TWICE A DAY;?
     Route: 048
     Dates: start: 20220302, end: 20221218

REACTIONS (5)
  - Gastric haemorrhage [None]
  - Oesophagitis [None]
  - Helicobacter infection [None]
  - Oesophageal ulcer [None]
  - Thrombosis [None]

NARRATIVE: CASE EVENT DATE: 20221214
